FAERS Safety Report 5678803-5 (Version None)
Quarter: 2008Q1

REPORT INFORMATION
  Report Type: 
  Country: None (occurrence: None)
  Receive Date: 20080320
  Receipt Date: 20080313
  Transmission Date: 20080703
  Serious: Yes (Other)
  Sender: FDA-Public Use
  Company Number: 100#08#2008-01505

PATIENT
  Age: 37 Year
  Sex: Female

DRUGS (2)
  1. CITALOPRAM HYDROBROMIDE [Suspect]
     Indication: DEPRESSION
     Dosage: REDUCED FROM 40 MG TO 10 MG DAILY
  2. PROCHLORPERAZINE MALEATE [Suspect]
     Indication: HYPEREMESIS GRAVIDARUM
     Dosage: 12.5 MG INTRAMUSCULAR
     Route: 030

REACTIONS (5)
  - AGITATION [None]
  - ANXIETY [None]
  - DRUG INTERACTION [None]
  - DYSTONIA [None]
  - WITHDRAWAL SYNDROME [None]
